FAERS Safety Report 7649761 (Version 2)
Quarter: 2016Q1

REPORT INFORMATION
  Report Type: Spontaneous
  Country: FR (occurrence: FR)
  Receive Date: 20101029
  Receipt Date: 20160128
  Transmission Date: 20160526
  Serious: Yes (Life-Threatening, Hospitalization, Other)
  Sender: FDA-Public Use
  Company Number: FR-BRISTOL-MYERS SQUIBB COMPANY-15353196

PATIENT
  Sex: Male
  Weight: 1.2 kg

DRUGS (2)
  1. TAXOL [Suspect]
     Active Substance: PACLITAXEL
     Indication: PRODUCT USED FOR UNKNOWN INDICATION
     Dosage: 175 MG/M2, UNK
     Route: 064
  2. CARBOPLATINE TEVA [Suspect]
     Active Substance: CARBOPLATIN
     Indication: PRODUCT USED FOR UNKNOWN INDICATION
     Dosage: 400 MG/M2, UNK
     Route: 064

REACTIONS (5)
  - Hypernatraemia [Unknown]
  - Foetal exposure during pregnancy [Unknown]
  - Renal tubular disorder [Not Recovered/Not Resolved]
  - Premature baby [Unknown]
  - Neonatal respiratory distress syndrome [Unknown]

NARRATIVE: CASE EVENT DATE: 20100803
